FAERS Safety Report 5775843-2 (Version None)
Quarter: 2008Q2

REPORT INFORMATION
  Report Type: 
  Country: None (occurrence: None)
  Receive Date: 20080601
  Receipt Date: 20080331
  Transmission Date: 20081010
  Serious: No
  Sender: FDA-Public Use
  Company Number: US200803004883

PATIENT
  Age: 59 Year
  Sex: Male
  Weight: 96.1 kg

DRUGS (5)
  1. BYETTA [Suspect]
     Indication: TYPE 2 DIABETES MELLITUS
     Dosage: SUBCUTANEOUS : 10 UG, 2/D, SUBCUTANEOUS
     Route: 058
     Dates: start: 20070601
  2. ACTOS [Concomitant]
  3. LEVEMIR (INSULIN DETEMIR) [Concomitant]
  4. GLUCOPHAGE [Concomitant]
  5. VYTOIN (EZETIMIBE, SIMVASTATIN) [Concomitant]

REACTIONS (5)
  - BLOOD GLUCOSE DECREASED [None]
  - PALPITATIONS [None]
  - SPEECH DISORDER [None]
  - TREMOR [None]
  - WEIGHT DECREASED [None]
